FAERS Safety Report 13518043 (Version 3)
Quarter: 2017Q2

REPORT INFORMATION
  Report Type: Spontaneous
  Country: US (occurrence: US)
  Receive Date: 20170505
  Receipt Date: 20170614
  Transmission Date: 20170830
  Serious: Yes (Other)
  Sender: FDA-Public Use
  Company Number: US-GLAXOSMITHKLINE-US2017GSK064703

PATIENT
  Sex: Male

DRUGS (1)
  1. BACTROBAN [Suspect]
     Active Substance: MUPIROCIN\MUPIROCIN CALCIUM
     Indication: NASAL DRYNESS
     Route: 061

REACTIONS (12)
  - Gastrointestinal disorder [Unknown]
  - Pain [Unknown]
  - Poisoning [Unknown]
  - Product contamination [Unknown]
  - Discomfort [Unknown]
  - Tongue discomfort [Unknown]
  - Nasal crusting [Not Recovered/Not Resolved]
  - Oral discomfort [Unknown]
  - Product use issue [Unknown]
  - Malaise [Unknown]
  - Burning mouth syndrome [Unknown]
  - Product quality issue [Unknown]
